FAERS Safety Report 12042793 (Version 1)
Quarter: 2016Q1

REPORT INFORMATION
  Report Type: Other
  Country: US (occurrence: US)
  Receive Date: 20160208
  Receipt Date: 20160208
  Transmission Date: 20160526
  Serious: No
  Sender: FDA-Public Use
  Company Number: US-ANTARES PHARMA, INC.-2015-LIT-ME-0232

PATIENT
  Age: 7 Year
  Sex: Male

DRUGS (2)
  1. METHOTREXATE [Suspect]
     Active Substance: METHOTREXATE
     Dosage: 5 MG, QWK
  2. METHOTREXATE [Suspect]
     Active Substance: METHOTREXATE
     Indication: PITYRIASIS LICHENOIDES ET VARIOLIFORMIS ACUTA
     Dosage: 7.5 MG, QWK

REACTIONS (1)
  - Off label use [None]
